FAERS Safety Report 4355940-9 (Version None)
Quarter: 2004Q2

REPORT INFORMATION
  Report Type: 
  Country: None (occurrence: None)
  Receive Date: 20040507
  Receipt Date: 20040507
  Transmission Date: 20050107
  Serious: Yes (Life-Threatening, Hospitalization)
  Sender: FDA-Public Use
  Company Number: None

PATIENT
  Age: 72 Year
  Sex: Male

DRUGS (8)
  1. GATIFLOXACIN [Suspect]
     Indication: OSTEOMYELITIS
     Dosage: 400 MG DAILY ORAL
     Route: 048
     Dates: start: 20040410, end: 20040414
  2. HYDROCHLOROTHIAZIDE [Concomitant]
  3. CLONIDINE HCL [Concomitant]
  4. RAMIPRIL [Concomitant]
  5. ASPIRIN [Concomitant]
  6. SIMVASTATIN [Concomitant]
  7. METOPROLOL [Concomitant]
  8. PENTOXIFYLLINE [Concomitant]

REACTIONS (5)
  - ABDOMINAL DISCOMFORT [None]
  - DECREASED APPETITE [None]
  - ELECTROCARDIOGRAM QT PROLONGED [None]
  - NAUSEA [None]
  - VOMITING [None]
